FAERS Safety Report 8513403 (Version 3)
Quarter: 2013Q1

REPORT INFORMATION
  Report Type: Report from Study
  Country: NL (occurrence: NL)
  Receive Date: 20120416
  Receipt Date: 20130129
  Transmission Date: 20140127
  Serious: Yes (Death, Congenital Anomaly)
  Sender: FDA-Public Use
  Company Number: NL-JNJFOC-20120401867

PATIENT
  Sex: Female

DRUGS (5)
  1. REMICADE [Suspect]
     Indication: FOETAL EXPOSURE DURING PREGNANCY
     Route: 064
     Dates: start: 20120201
  2. REMICADE [Suspect]
     Indication: FOETAL EXPOSURE DURING PREGNANCY
     Route: 064
     Dates: start: 20111227
  3. ANTIHISTAMINES [Concomitant]
     Route: 064
  4. ACETAMINOPHEN [Concomitant]
     Route: 064
  5. CORTICOSTEROIDS [Concomitant]
     Route: 064

REACTIONS (6)
  - Premature baby [Fatal]
  - Congenital great vessel anomaly [Fatal]
  - Heart disease congenital [Fatal]
  - Vein disorder [Fatal]
  - Congenital arterial malformation [Fatal]
  - Heterotaxia [Fatal]
